FAERS Safety Report 24864277 (Version 2)
Quarter: 2025Q1

REPORT INFORMATION
  Report Type: Spontaneous
  Country: US (occurrence: US)
  Receive Date: 20250120
  Receipt Date: 20250213
  Transmission Date: 20250409
  Serious: Yes (Other)
  Sender: TAKEDA
  Company Number: US-TAKEDA-2025TUS003543

PATIENT
  Sex: Female
  Weight: 68 kg

DRUGS (6)
  1. LIALDA [Suspect]
     Active Substance: MESALAMINE
     Indication: Colitis ulcerative
     Dosage: UNK UNK, QD
  2. LIALDA [Suspect]
     Active Substance: MESALAMINE
  3. MESALAMINE [Suspect]
     Active Substance: MESALAMINE
     Indication: Product used for unknown indication
     Dosage: UNK UNK, QD
  4. DILANTIN [Concomitant]
     Active Substance: PHENYTOIN
  5. PRIMIDONE [Concomitant]
     Active Substance: PRIMIDONE
  6. FOLIC ACID [Concomitant]
     Active Substance: FOLIC ACID

REACTIONS (6)
  - Pulmonary embolism [Unknown]
  - Thrombosis [Unknown]
  - Shoulder fracture [Unknown]
  - Colitis ulcerative [Unknown]
  - Fall [Unknown]
  - Arthropathy [Unknown]
